FAERS Safety Report 21499012 (Version 1)
Quarter: 2022Q4

REPORT INFORMATION
  Report Type: Spontaneous
  Country: US (occurrence: US)
  Receive Date: 20221024
  Receipt Date: 20221024
  Transmission Date: 20230113
  Serious: Yes (Hospitalization)
  Sender: FDA-Public Use
  Company Number: US-MYLANLABS-2022M1116526

PATIENT
  Age: 53 Year
  Sex: Female

DRUGS (2)
  1. FLUCONAZOLE [Suspect]
     Active Substance: FLUCONAZOLE
     Indication: Disseminated coccidioidomycosis
     Dosage: 1000 MILLIGRAM, QD
     Route: 048
  2. AMPHOTERICIN B [Concomitant]
     Active Substance: AMPHOTERICIN B
     Indication: Disseminated coccidioidomycosis
     Dosage: UNK, INFUSION
     Route: 042

REACTIONS (2)
  - Drug ineffective [Unknown]
  - Skin hyperpigmentation [Unknown]
